FAERS Safety Report 9478274 (Version 2)
Quarter: 2013Q4

REPORT INFORMATION
  Report Type: Report from Study
  Country: JP (occurrence: JP)
  Receive Date: 20130827
  Receipt Date: 20131018
  Transmission Date: 20140711
  Serious: Yes (Death, Hospitalization)
  Sender: FDA-Public Use
  Company Number: JP-AMGEN-JPNCT2013060032

PATIENT
  Age: 71 Year
  Sex: Male
  Weight: 60 kg

DRUGS (17)
  1. DARBEPOETIN ALFA [Suspect]
     Indication: NEPHROGENIC ANAEMIA
     Dosage: 30 MUG, Q2WK
     Route: 058
     Dates: start: 20110804, end: 20110816
  2. DARBEPOETIN ALFA [Suspect]
     Dosage: 60 MUG, Q4WK
     Route: 058
     Dates: start: 20110901, end: 20110929
  3. DARBEPOETIN ALFA [Suspect]
     Dosage: 120 MUG, Q4WK
     Route: 058
     Dates: start: 20111027, end: 20111222
  4. DARBEPOETIN ALFA [Suspect]
     Dosage: 120 MUG, QD
     Route: 058
     Dates: start: 20120109, end: 20120109
  5. DARBEPOETIN ALFA [Suspect]
     Dosage: 120 MUG, Q4WK
     Route: 058
     Dates: start: 20120216, end: 20120412
  6. DARBEPOETIN ALFA [Suspect]
     Dosage: 120 MUG, Q3WK
     Route: 058
     Dates: start: 20120425, end: 20120517
  7. DARBEPOETIN ALFA [Suspect]
     Dosage: 120 MUG, Q4WK
     Route: 058
     Dates: start: 20120614, end: 20120809
  8. DARBEPOETIN ALFA [Suspect]
     Dosage: 120 MUG, QD
     Route: 058
     Dates: start: 20120821, end: 20120821
  9. OMEPRAL [Concomitant]
     Dosage: UNK
     Route: 048
  10. HALFDIGOXIN [Concomitant]
     Dosage: UNK
     Route: 048
  11. BAKTAR [Concomitant]
     Indication: ANTIFUNGAL PROPHYLAXIS
     Dosage: UNK
     Route: 048
  12. DIOVAN [Concomitant]
     Dosage: UNK
     Route: 048
  13. WARFARIN [Concomitant]
     Dosage: UNK
     Route: 048
  14. LASIX [Concomitant]
     Dosage: UNK
     Route: 048
  15. REVLIMID [Concomitant]
     Indication: PLASMA CELL MYELOMA
     Dosage: UNK
     Route: 048
     Dates: end: 20120503
  16. BONALON [Concomitant]
     Dosage: UNK
     Route: 048
  17. BONOTEO [Concomitant]
     Dosage: UNK
     Route: 048

REACTIONS (3)
  - Plasma cell myeloma [Fatal]
  - Insomnia [Recovering/Resolving]
  - Hyperuricaemia [Recovering/Resolving]
